FAERS Safety Report 25414152 (Version 1)
Quarter: 2025Q2

REPORT INFORMATION
  Report Type: Spontaneous
  Country: CA (occurrence: CA)
  Receive Date: 20250609
  Receipt Date: 20250609
  Transmission Date: 20250716
  Serious: Yes (Death)
  Sender: MYLAN
  Company Number: CA-MYLANLABS-2025M1048511

PATIENT
  Age: 64 Year
  Sex: Female

DRUGS (36)
  1. SERTRALINE [Suspect]
     Active Substance: SERTRALINE HYDROCHLORIDE
     Indication: Product used for unknown indication
  2. SERTRALINE [Suspect]
     Active Substance: SERTRALINE HYDROCHLORIDE
     Route: 065
  3. SERTRALINE [Suspect]
     Active Substance: SERTRALINE HYDROCHLORIDE
     Route: 065
  4. SERTRALINE [Suspect]
     Active Substance: SERTRALINE HYDROCHLORIDE
  5. AMPHETAMINE [Suspect]
     Active Substance: AMPHETAMINE
     Indication: Product used for unknown indication
  6. AMPHETAMINE [Suspect]
     Active Substance: AMPHETAMINE
     Route: 065
  7. AMPHETAMINE [Suspect]
     Active Substance: AMPHETAMINE
     Route: 065
  8. AMPHETAMINE [Suspect]
     Active Substance: AMPHETAMINE
  9. BUPRENORPHINE [Suspect]
     Active Substance: BUPRENORPHINE
     Indication: Product used for unknown indication
  10. BUPRENORPHINE [Suspect]
     Active Substance: BUPRENORPHINE
     Route: 065
  11. BUPRENORPHINE [Suspect]
     Active Substance: BUPRENORPHINE
     Route: 065
  12. BUPRENORPHINE [Suspect]
     Active Substance: BUPRENORPHINE
  13. CAFFEINE [Suspect]
     Active Substance: CAFFEINE
     Indication: Product used for unknown indication
  14. CAFFEINE [Suspect]
     Active Substance: CAFFEINE
     Route: 065
  15. CAFFEINE [Suspect]
     Active Substance: CAFFEINE
     Route: 065
  16. CAFFEINE [Suspect]
     Active Substance: CAFFEINE
  17. DICLOFENAC\DICYCLOMINE [Suspect]
     Active Substance: DICLOFENAC\DICYCLOMINE
     Indication: Product used for unknown indication
  18. DICLOFENAC\DICYCLOMINE [Suspect]
     Active Substance: DICLOFENAC\DICYCLOMINE
     Route: 065
  19. DICLOFENAC\DICYCLOMINE [Suspect]
     Active Substance: DICLOFENAC\DICYCLOMINE
     Route: 065
  20. DICLOFENAC\DICYCLOMINE [Suspect]
     Active Substance: DICLOFENAC\DICYCLOMINE
  21. FENTANYL [Suspect]
     Active Substance: FENTANYL
     Indication: Product used for unknown indication
  22. FENTANYL [Suspect]
     Active Substance: FENTANYL
     Route: 065
  23. FENTANYL [Suspect]
     Active Substance: FENTANYL
     Route: 065
  24. FENTANYL [Suspect]
     Active Substance: FENTANYL
  25. METHAMPHETAMINE [Suspect]
     Active Substance: METHAMPHETAMINE
     Indication: Product used for unknown indication
  26. METHAMPHETAMINE [Suspect]
     Active Substance: METHAMPHETAMINE
     Route: 065
  27. METHAMPHETAMINE [Suspect]
     Active Substance: METHAMPHETAMINE
     Route: 065
  28. METHAMPHETAMINE [Suspect]
     Active Substance: METHAMPHETAMINE
  29. NALOXONE [Suspect]
     Active Substance: NALOXONE
     Indication: Product used for unknown indication
  30. NALOXONE [Suspect]
     Active Substance: NALOXONE
     Route: 065
  31. NALOXONE [Suspect]
     Active Substance: NALOXONE
     Route: 065
  32. NALOXONE [Suspect]
     Active Substance: NALOXONE
  33. NICOTINE [Suspect]
     Active Substance: NICOTINE
     Indication: Product used for unknown indication
  34. NICOTINE [Suspect]
     Active Substance: NICOTINE
     Route: 065
  35. NICOTINE [Suspect]
     Active Substance: NICOTINE
     Route: 065
  36. NICOTINE [Suspect]
     Active Substance: NICOTINE

REACTIONS (2)
  - Overdose [Fatal]
  - Toxicity to various agents [Fatal]
